FAERS Safety Report 5646305-8 (Version None)
Quarter: 2008Q1

REPORT INFORMATION
  Report Type: 
  Country: None (occurrence: None)
  Receive Date: 20080303
  Receipt Date: 20080226
  Transmission Date: 20080703
  Serious: Yes (Congenital Anomaly, Other)
  Sender: FDA-Public Use
  Company Number: BR-BAYER-200811725LA

PATIENT
  Age: 6 Week
  Sex: Male
  Weight: 3.6 kg

DRUGS (1)
  1. YAZ [Suspect]
     Indication: CONTRACEPTION
     Route: 064
     Dates: start: 20070401, end: 20070617

REACTIONS (2)
  - HYDRONEPHROSIS [None]
  - NO ADVERSE EVENT [None]
